FAERS Safety Report 19508966 (Version 2)
Quarter: 2022Q1

REPORT INFORMATION
  Report Type: Spontaneous
  Country: GB (occurrence: GB)
  Receive Date: 20210708
  Receipt Date: 20220214
  Transmission Date: 20220424
  Serious: Yes (Death, Life-Threatening, Other)
  Sender: FDA-Public Use
  Company Number: None

PATIENT
  Age: 96 Year
  Sex: Female
  Weight: 51.71 kg

DRUGS (7)
  1. AMLODIPINE [Suspect]
     Active Substance: AMLODIPINE BESYLATE
     Indication: Hypertension
     Dosage: 5 MILLIGRAM, QD (IN THE MORNING)
     Route: 048
     Dates: start: 20200916, end: 20200918
  2. ALLOPURINOL [Concomitant]
     Active Substance: ALLOPURINOL
     Dosage: 100 MILLIGRAM, QD
  3. BISOPROLOL [Concomitant]
     Active Substance: BISOPROLOL
     Dosage: 5 MILLIGRAM
  4. CINNARIZINE [Concomitant]
     Active Substance: CINNARIZINE
     Dosage: 30 MILLIGRAM, TID
  5. DIGOXIN [Concomitant]
     Active Substance: DIGOXIN
     Dosage: 62.5 MICROGRAM, QD (IN MORNING)
  6. SIMVASTATIN [Concomitant]
     Active Substance: SIMVASTATIN
     Dosage: 40 MILLIGRAM, QD (TAKE AT NIGHT)
  7. WARFARIN [Concomitant]
     Active Substance: WARFARIN
     Dosage: 1 MILLIGRAM, DOSE INTERVAL VARIED

REACTIONS (9)
  - Anaphylactic shock [Fatal]
  - Anaphylactic reaction [Not Recovered/Not Resolved]
  - Decreased appetite [Unknown]
  - Cyanosis [Unknown]
  - Muscular weakness [Unknown]
  - Feeling abnormal [Unknown]
  - Dizziness [Unknown]
  - Back pain [Unknown]
  - Vomiting [Unknown]

NARRATIVE: CASE EVENT DATE: 20200917
